FAERS Safety Report 5157695-7 (Version None)
Quarter: 2006Q4

REPORT INFORMATION
  Report Type: 
  Country: None (occurrence: None)
  Receive Date: 20061116
  Receipt Date: 20061114
  Transmission Date: 20070319
  Serious: Yes (Hospitalization)
  Sender: FDA-Public Use
  Company Number: 222451

PATIENT
  Age: 59 Year
  Sex: Female

DRUGS (15)
  1. AVASTIN [Suspect]
     Indication: BREAST CANCER METASTATIC
     Dosage: 15 MG/KG, Q3W, INTRAVENOUS
     Route: 042
     Dates: start: 20051011, end: 20060124
  2. TAXOTERE [Suspect]
     Indication: BREAST CANCER METASTATIC
     Dosage: 75 MG/M2, Q3W, INTRAVENOUS
     Route: 042
     Dates: start: 20051011, end: 20060124
  3. KLOR-CON [Concomitant]
  4. TOPROL-XL [Concomitant]
  5. MULTIVITAMIN (MULTIVITAMINS NOS) [Concomitant]
  6. TYLENOL (CAPLET) [Concomitant]
  7. ECHINACEA (ECHINACEA) [Concomitant]
  8. VITAMIN E [Concomitant]
  9. LOSCALCON (CALCIUM CARBONATE) [Concomitant]
  10. CYANOCOBALAMIN [Concomitant]
  11. ZOMETA [Concomitant]
  12. NEULASTA [Concomitant]
  13. SENOKOT [Concomitant]
  14. ALOXI [Concomitant]
  15. DECADRON [Concomitant]

REACTIONS (9)
  - COLITIS ISCHAEMIC [None]
  - DYSARTHRIA [None]
  - EMBOLISM [None]
  - HAEMATOCHEZIA [None]
  - HAEMORRHOIDS [None]
  - HYPOAESTHESIA [None]
  - HYPONATRAEMIA [None]
  - INAPPROPRIATE ANTIDIURETIC HORMONE SECRETION [None]
  - VOMITING PROJECTILE [None]
